FAERS Safety Report 6431545-0 (Version None)
Quarter: 2009Q4

REPORT INFORMATION
  Report Type: 
  Country: None (occurrence: None)
  Receive Date: 20091103
  Receipt Date: 20091020
  Transmission Date: 20100525
  Serious: Yes (Other)
  Sender: FDA-Public Use
  Company Number: TRP_06529_2009

PATIENT
  Age: 58 Year
  Sex: Female

DRUGS (3)
  1. RIBAVIRIN (RIBAVIRINE) [Suspect]
     Indication: HEPATITIS C
     Dosage: DF, 1000 MG, DAILY, ORAL
     Route: 048
     Dates: start: 20030101
  2. PEGYLATED INTERFERON [Suspect]
     Indication: HEPATITIS C
     Dosage: DF, 180 UG 1X/WEEK; SUBCUTANEOUS
     Route: 058
     Dates: start: 20030101
  3. AMANTADINE HCL [Suspect]
     Indication: HEPATITIS C
     Dosage: DF,
     Dates: start: 20030101

REACTIONS (27)
  - AGEUSIA [None]
  - ANGIOTENSIN CONVERTING ENZYME [None]
  - ASPARTATE AMINOTRANSFERASE INCREASED [None]
  - BLOOD ALKALINE PHOSPHATASE INCREASED [None]
  - BRONCHIECTASIS [None]
  - CHOLESTASIS [None]
  - CREPITATIONS [None]
  - DRY EYE [None]
  - DRY MOUTH [None]
  - DYSAESTHESIA [None]
  - DYSPNOEA [None]
  - FATIGUE [None]
  - GAMMA-GLUTAMYLTRANSFERASE INCREASED [None]
  - HEPATIC FIBROSIS [None]
  - HYPOSMIA [None]
  - INTERSTITIAL LUNG DISEASE [None]
  - LYSOZYME INCREASED [None]
  - NECROSIS [None]
  - PAIN [None]
  - PARAESTHESIA [None]
  - PARESIS [None]
  - PULMONARY FIBROSIS [None]
  - RASH PAPULAR [None]
  - SARCOIDOSIS [None]
  - VASCULITIS [None]
  - VIRAL LOAD [None]
  - VIRAL LOAD INCREASED [None]
